FAERS Safety Report 24149403 (Version 1)
Quarter: 2024Q3

REPORT INFORMATION
  Report Type: Spontaneous
  Country: GB (occurrence: GB)
  Receive Date: 20240730
  Receipt Date: 20240730
  Transmission Date: 20241017
  Serious: Yes (Other)
  Sender: VERITY PHARMACEUTICALS
  Company Number: GB-VER-202400005

PATIENT
  Age: 60 Year
  Weight: 77 kg

DRUGS (1)
  1. TRIPTORELIN PAMOATE [Suspect]
     Active Substance: TRIPTORELIN PAMOATE
     Indication: Prostate cancer
     Dosage: 1125 MICROGRAM, POWDER AND SOLVENT FOR SUSPENSION FOR INJECTION.
     Route: 065
     Dates: start: 20240130, end: 20240418

REACTIONS (3)
  - Cerebrovascular accident [Not Recovered/Not Resolved]
  - Hyperprolactinaemia [Not Recovered/Not Resolved]
  - Testicular pain [Not Recovered/Not Resolved]

NARRATIVE: CASE EVENT DATE: 20240306
